FAERS Safety Report 5072775-2 (Version None)
Quarter: 2006Q3

REPORT INFORMATION
  Report Type: 
  Country: None (occurrence: None)
  Receive Date: 20060807
  Receipt Date: 20060106
  Transmission Date: 20061208
  Serious: Yes (Death, Hospitalization)
  Sender: FDA-Public Use
  Company Number: IE-BRISTOL-MYERS SQUIBB COMPANY-13239579

PATIENT
  Age: 67 Year
  Sex: Female

DRUGS (5)
  1. ERBITUX [Suspect]
     Indication: NON-SMALL CELL LUNG CANCER
     Dosage: MOST RECENT INFUSION 21-OCT-05 (6TH INFUSION).
     Route: 041
     Dates: start: 20050826
  2. CISPLATIN [Suspect]
     Indication: NON-SMALL CELL LUNG CANCER
     Dosage: MOST RECENT INFUSION 14-OCT-05 (2ND INFUSION).
     Route: 042
     Dates: start: 20050826
  3. VINORELBINE [Suspect]
     Indication: NON-SMALL CELL LUNG CANCER
     Dosage: MOST RECENT INFUSION 14-OCT-05 (4TH INFUSION).
     Route: 042
     Dates: start: 20050916
  4. LEVOFLOXACIN [Concomitant]
  5. PREDNISOLONE [Concomitant]

REACTIONS (6)
  - CARDIO-RESPIRATORY ARREST [None]
  - HAEMOGLOBIN DECREASED [None]
  - NEUTROPENIA [None]
  - PHARYNGOLARYNGEAL PAIN [None]
  - PULMONARY EMBOLISM [None]
  - WHITE BLOOD CELL COUNT ABNORMAL [None]
